FAERS Safety Report 7436915-X (Version None)
Quarter: 2011Q2

REPORT INFORMATION
  Report Type: 
  Country: None (occurrence: None)
  Receive Date: 20110426
  Receipt Date: 20110321
  Transmission Date: 20111010
  Serious: Yes (Other)
  Sender: FDA-Public Use
  Company Number: US-BAYER-2010-001220

PATIENT
  Age: 18 Year
  Sex: Female
  Weight: 70.295 kg

DRUGS (3)
  1. YASMIN [Suspect]
     Indication: ACNE
     Dosage: UNK
     Dates: start: 20060201, end: 20090109
  2. OCELLA [Suspect]
     Indication: ACNE
     Dosage: UNK
     Dates: start: 20060201, end: 20090109
  3. YAZ [Suspect]
     Indication: ACNE
     Dosage: UNK
     Dates: start: 20060201, end: 20090109

REACTIONS (1)
  - GALLBLADDER DISORDER [None]
